FAERS Safety Report 8807078 (Version 3)
Quarter: 2014Q2

REPORT INFORMATION
  Report Type: Report from Study
  Country: DE (occurrence: DE)
  Receive Date: 20120925
  Receipt Date: 20140626
  Transmission Date: 20141212
  Serious: Yes (Life-Threatening, Hospitalization)
  Sender: FDA-Public Use
  Company Number: DE-ROCHE-1125105

PATIENT
  Age: 60 Year
  Sex: Female
  Weight: 67 kg

DRUGS (3)
  1. BEVACIZUMAB [Suspect]
     Indication: OVARIAN CANCER
     Dosage: DATE OF LAST DOSE ADMINISTERED PRIOR SAE 31/AUG/2012
     Route: 042
     Dates: start: 20120831
  2. CARBOPLATIN [Suspect]
     Indication: OVARIAN CANCER
     Dosage: LAST DOSE ADMINISTERED PRIOR TO SAE 31/AUG/2012
     Route: 042
     Dates: start: 20120831
  3. PACLITAXEL [Suspect]
     Indication: OVARIAN CANCER
     Dosage: LAST DOSE ADMINISTERED PRIOR TO SAE 31/AUG/2012
     Route: 042
     Dates: start: 20120831

REACTIONS (1)
  - Depressed level of consciousness [Recovered/Resolved]
